FAERS Safety Report 8009893-2 (Version None)
Quarter: 2011Q4

REPORT INFORMATION
  Report Type: 
  Country: None (occurrence: None)
  Receive Date: 20111221
  Receipt Date: 20111205
  Transmission Date: 20120403
  Serious: Yes (Death, Other)
  Sender: FDA-Public Use
  Company Number: 2011AP002845

PATIENT
  Age: 68 Year
  Sex: Male

DRUGS (2)
  1. COLCHICINE [Suspect]
     Indication: GOUT
     Dosage: 1 MG; IV; 1.2 MG; PO
     Route: 042
  2. AMIODARONE HYDROCHLORIDE [Suspect]
     Indication: PRODUCT USED FOR UNKNOWN INDICATION
     Dosage: 400 MG;TID;

REACTIONS (5)
  - TOXICITY TO VARIOUS AGENTS [None]
  - DRUG INTERACTION [None]
  - THROMBOCYTOPENIA [None]
  - CARDIAC ARREST [None]
  - RENAL FAILURE [None]
